FAERS Safety Report 6399214-3 (Version None)
Quarter: 2009Q4

REPORT INFORMATION
  Report Type: 
  Country: None (occurrence: None)
  Receive Date: 20091008
  Receipt Date: 20090929
  Transmission Date: 20100525
  Serious: Yes (Life-Threatening)
  Sender: FDA-Public Use
  Company Number: GXKR2009AR10794

PATIENT
  Age: 35 Year
  Sex: Female

DRUGS (4)
  1. RANITIDINE [Suspect]
     Dosage: 100 MG, INFUSION
  2. METOCLOPRAMIDE [Concomitant]
  3. DIPYRONE (METAMIZOLE SODIUM) [Concomitant]
  4. SODIUM CHLORIDE [Concomitant]

REACTIONS (3)
  - CARDIAC ARREST [None]
  - INFUSION RELATED REACTION [None]
  - VENTRICULAR ARRHYTHMIA [None]
